FAERS Safety Report 8290767-7 (Version None)
Quarter: 2012Q2

REPORT INFORMATION
  Report Type: 
  Country: None (occurrence: None)
  Receive Date: 20120417
  Receipt Date: 20120411
  Transmission Date: 20120825
  Serious: Yes (Hospitalization)
  Sender: FDA-Public Use
  Company Number: IT-BAYER-2012-035243

PATIENT
  Age: 83 Year
  Sex: Female

DRUGS (5)
  1. LIMPIDEX [Concomitant]
     Indication: DIVERTICULUM
     Dosage: DAILY DOSE 15 MG
     Route: 048
  2. TRAMADOL HCL [Concomitant]
     Indication: OSTEOPOROSIS
     Dosage: DAILY DOSE 100 MG
     Route: 048
  3. NORVASC [Concomitant]
     Indication: HYPERTENSION
     Dosage: DAILY DOSE 5 MG
     Route: 048
  4. ASPIRIN [Suspect]
     Indication: CARDIOVASCULAR EVENT PROPHYLAXIS
     Dosage: 100 MG, QD
     Route: 048
     Dates: start: 20100101, end: 20120315
  5. VALSARTAN  AND HYDROCHLOROTHIAZIDE [Concomitant]
     Indication: HYPERTENSION
     Dosage: DAILY DOSE 172.5 MG
     Route: 048
     Dates: start: 20100101, end: 20120315

REACTIONS (2)
  - RENAL FAILURE ACUTE [None]
  - HYPERKALAEMIA [None]
